FAERS Safety Report 24446739 (Version 1)
Quarter: 2024Q4

REPORT INFORMATION
  Report Type: Spontaneous
  Country: GB (occurrence: GB)
  Receive Date: 20241016
  Receipt Date: 20241016
  Transmission Date: 20250114
  Serious: Yes (Congenital Anomaly)
  Sender: MYLAN
  Company Number: GB-Provepharm SAS-2024000064

PATIENT
  Age: 36 Week

DRUGS (5)
  1. LAMOTRIGINE [Suspect]
     Active Substance: LAMOTRIGINE
     Indication: Product used for unknown indication
     Dosage: 300 MILLIGRAM, QD (150 MG TWO TIMES A DAY)
     Route: 064
  2. QUETIAPINE [Suspect]
     Active Substance: QUETIAPINE
     Indication: Product used for unknown indication
     Dosage: 75 MILLIGRAM, QD  (75 MG ONCE A DAY)
     Route: 064
  3. DIAZEPAM [Suspect]
     Active Substance: DIAZEPAM
     Indication: Product used for unknown indication
     Dosage: 100 MILLIGRAM (100 MG AT 30 WEEKS OF GESTATION)
     Route: 064
  4. ALPRAZOLAM [Suspect]
     Active Substance: ALPRAZOLAM
     Indication: Product used for unknown indication
     Dosage: 10 MILLIGRAM (10 MG AT 30 WEEKS OF GESTATION)
     Route: 064
  5. METHYLENE BLUE [Suspect]
     Active Substance: METHYLENE BLUE
     Indication: Methaemoglobinaemia
     Dosage: 120 MILLIGRAM, TOTAL (THE MOTHER WAS TREATED WITH 120MG (2MG/KG) FOR METHAEMOGLOBINAEMIA)
     Route: 064

REACTIONS (1)
  - Small for dates baby [Unknown]
